FAERS Safety Report 9009846 (Version 2)
Quarter: 2013Q1

REPORT INFORMATION
  Report Type: Report from Study
  Country: US (occurrence: US)
  Receive Date: 20130110
  Receipt Date: 20130115
  Transmission Date: 20140127
  Serious: Yes (Death, Life-Threatening, Hospitalization, Other)
  Sender: FDA-Public Use
  Company Number: US-009507513-2010SP043089

PATIENT
  Age: 72 Year
  Sex: Male
  Weight: 83.1 kg

DRUGS (22)
  1. NEWCHAPTER ZYFLAMEND [Concomitant]
     Indication: ROUTINE HEALTH MAINTENANCE
     Dosage: 2 DF, QD
     Dates: start: 2005
  2. CRANBERRY [Concomitant]
     Indication: PROPHYLAXIS
     Dosage: 475 MG, QD
     Dates: start: 2005
  3. ASCORBIC ACID [Concomitant]
     Indication: ROUTINE HEALTH MAINTENANCE
     Dosage: 1000 MG, TID
     Dates: start: 2005
  4. CHOLECALCIFEROL [Concomitant]
     Indication: ROUTINE HEALTH MAINTENANCE
     Dosage: 2000, IU, QD
     Dates: start: 2005
  5. UBIDECARENONE [Concomitant]
     Indication: PROPHYLAXIS
     Dosage: 300 MG, QD
     Dates: start: 2000
  6. CHONDROITIN SULFATE SODIUM (+) GLUCOSAMINE HYDROCHLORIDE [Concomitant]
     Indication: ROUTINE HEALTH MAINTENANCE
     Dosage: 1 DF, QD
     Dates: start: 1980
  7. PHYTONADIONE [Concomitant]
     Indication: VITAMIN SUPPLEMENTATION
     Dosage: 10 MG, QD
     Dates: start: 2009
  8. ATORVASTATIN [Concomitant]
     Indication: HYPERLIPIDAEMIA
     Dosage: 40 MG, QD
     Dates: start: 1998
  9. ATENOLOL [Concomitant]
     Indication: PROPHYLAXIS
     Dosage: 25 MG, QD
     Dates: start: 2005
  10. NIACIN [Concomitant]
     Indication: HYPERLIPIDAEMIA
     Dosage: 500 MG, QID
     Dates: start: 1995
  11. CYANOCOBALAMIN [Concomitant]
     Indication: ROUTINE HEALTH MAINTENANCE
     Dosage: 1000 MICROGRAM, QD
     Dates: start: 2007
  12. LEVETIRACETAM [Concomitant]
     Indication: CEREBROVASCULAR ACCIDENT PROPHYLAXIS
     Dosage: 500 MG, BID
     Dates: start: 20100210, end: 20100516
  13. LEVETIRACETAM [Concomitant]
     Indication: CONVULSION PROPHYLAXIS
     Dosage: 750 MG, BID
     Dates: start: 20100516
  14. METHYLPHENIDATE HYDROCHLORIDE [Concomitant]
     Indication: FATIGUE
     Dosage: 10 MG, QD
     Dates: start: 20100527, end: 20100623
  15. CITALOPRAM [Concomitant]
     Indication: DEPRESSION
     Dosage: 10 MG, QD
     Dates: start: 20100527, end: 20100626
  16. FLUCONAZOLE [Concomitant]
     Indication: ORAL CANDIDIASIS
     Dosage: 2 TABLETS DAY 1, 1 TABLET DAYS 2-10
     Dates: start: 20100607, end: 20100616
  17. TURMERIC [Concomitant]
     Indication: ROUTINE HEALTH MAINTENANCE
     Dosage: 500 MG, TID
     Dates: start: 2008
  18. POMEGRANATE [Concomitant]
     Indication: ROUTINE HEALTH MAINTENANCE
     Dosage: 500 MG, UNK
     Dates: start: 2008
  19. TEMOZOLOMIDE [Suspect]
     Indication: GLIOBLASTOMA MULTIFORME
     Dosage: UNK
     Route: 048
     Dates: start: 20100222
  20. VELIPARIB [Suspect]
     Indication: GLIOBLASTOMA MULTIFORME
     Dosage: 20 MG (10 MG,2-2), QD
     Route: 048
     Dates: start: 20100222
  21. DEXAMETHASONE [Concomitant]
     Indication: ADRENOCORTICAL STEROID THERAPY
     Dosage: 4 MG, UNK
     Dates: start: 20100315
  22. VITAMINS (UNSPECIFIED) [Concomitant]
     Indication: VITAMIN SUPPLEMENTATION
     Dosage: 0.5 TABLET, QD
     Dates: start: 2009

REACTIONS (8)
  - Septic shock [Fatal]
  - Dehydration [Recovered/Resolved]
  - Fatigue [Recovered/Resolved]
  - Anaemia [Recovered/Resolved]
  - Pulmonary embolism [Recovered/Resolved]
  - Thrombosis [Recovered/Resolved]
  - Staphylococcal infection [Recovered/Resolved]
  - Asthenia [Recovered/Resolved]
